FAERS Safety Report 15012877 (Version 1)
Quarter: 2018Q2

REPORT INFORMATION
  Report Type: Spontaneous
  Country: NL (occurrence: NL)
  Receive Date: 20180614
  Receipt Date: 20180614
  Transmission Date: 20180711
  Serious: Yes (Other)
  Sender: FDA-Public Use
  Company Number: NL-TEVA-2018-NL-905867

PATIENT
  Age: 59 Year
  Sex: Male

DRUGS (8)
  1. DOXYCYCLINE. [Suspect]
     Active Substance: DOXYCYCLINE
     Indication: DERMATITIS ACNEIFORM
  2. CLINDAMYCINE OPL CUTAAN 10MG/ML (HCL) [Concomitant]
     Dosage: 1 DOSAGE FORMS DAILY; 1X DAAGS SMEREN
     Dates: start: 20170704
  3. IMIPRAMINE DRAGEE 10MG [Concomitant]
     Dosage: 10 MILLIGRAM DAILY; 1X DAAGS 1 DRAGEE
     Dates: start: 20171106
  4. SOLIFENACINE TABLET 10MG [Concomitant]
     Dosage: 10 MILLIGRAM DAILY; 1X DAAGS 1 TABLET
     Dates: start: 20160328
  5. DOXYCYCLINE. [Suspect]
     Active Substance: DOXYCYCLINE
     Indication: FOLLICULITIS
     Dosage: 100 MILLIGRAM DAILY;
     Dates: start: 20180312, end: 20180326
  6. MIRABEGRON TABLET MGA 50MG [Concomitant]
     Dosage: 50 MILLIGRAM DAILY; 1X DAAGS 1 STUK
     Dates: start: 20161216
  7. CIPROFLOXACINE TABLET OMHULD 500MG [Concomitant]
     Active Substance: CIPROFLOXACIN
     Dosage: 2X DAAGS 1 TABLET
     Dates: start: 20160328
  8. INSULINE [Concomitant]
     Active Substance: INSULIN NOS
     Route: 065

REACTIONS (1)
  - Diabetes mellitus inadequate control [Recovering/Resolving]

NARRATIVE: CASE EVENT DATE: 20180318
